FAERS Safety Report 24704068 (Version 1)
Quarter: 2024Q4

REPORT INFORMATION
  Report Type: Spontaneous
  Country: US (occurrence: US)
  Receive Date: 20241206
  Receipt Date: 20241206
  Transmission Date: 20250115
  Serious: No
  Sender: AUROBINDO
  Company Number: US-AUROBINDO-AUR-APL-2024-000725

PATIENT
  Age: 60 Year
  Sex: Female
  Weight: 52.1 kg

DRUGS (3)
  1. PROGESTERONE [Suspect]
     Active Substance: PROGESTERONE
     Indication: Hormone replacement therapy
     Dosage: 100 MILLIGRAM
     Route: 065
     Dates: start: 202303
  2. ESTRADIOL [Concomitant]
     Active Substance: ESTRADIOL
     Indication: Product used for unknown indication
     Dosage: UNK
     Route: 065
  3. ILAPRAZOLE [Concomitant]
     Active Substance: ILAPRAZOLE
     Indication: Product used for unknown indication
     Dosage: 10 MILLIGRAM, DAILY
     Route: 065

REACTIONS (5)
  - Breast swelling [Unknown]
  - Breast tenderness [Unknown]
  - Nausea [Unknown]
  - Headache [Unknown]
  - Product substitution issue [Unknown]
